FAERS Safety Report 13935708 (Version 1)
Quarter: 2017Q3

REPORT INFORMATION
  Report Type: Spontaneous
  Country: US (occurrence: None)
  Receive Date: 20170904
  Receipt Date: 20170904
  Transmission Date: 20171127
  Serious: No
  Sender: FDA-Public Use
  Company Number: None

PATIENT
  Age: 50 Year
  Sex: Male

DRUGS (1)
  1. LAMIVUD/ZIDOVUD TAB 150/300 [Suspect]
     Active Substance: LAMIVUDINE\ZIDOVUDINE
     Route: 048
     Dates: start: 20160801

REACTIONS (2)
  - Nausea [None]
  - Product substitution issue [None]

NARRATIVE: CASE EVENT DATE: 20170824
